FAERS Safety Report 9332867 (Version 2)
Quarter: 2014Q2

REPORT INFORMATION
  Report Type: Spontaneous
  Country: US (occurrence: US)
  Receive Date: 20130606
  Receipt Date: 20140414
  Transmission Date: 20141212
  Serious: Yes (Congenital Anomaly, Other)
  Sender: FDA-Public Use
  Company Number: US-PFIZER INC-2013169933

PATIENT
  Sex: Male

DRUGS (28)
  1. ZOLOFT [Suspect]
     Dosage: UNK
     Route: 064
     Dates: start: 200907
  2. SERTRALINE HCL [Suspect]
     Dosage: UNK
     Route: 064
     Dates: start: 200907
  3. KLONOPIN [Concomitant]
     Dosage: UNK
     Route: 064
  4. SYNTHROID [Concomitant]
     Dosage: UNK
     Route: 064
  5. ARTANE [Concomitant]
     Dosage: UNK
     Route: 064
  6. VALTREX [Concomitant]
     Dosage: UNK
     Route: 064
  7. ZITHROMAX [Concomitant]
     Dosage: UNK
     Route: 064
  8. CLONAZEPAM [Concomitant]
     Dosage: UNK
     Route: 064
  9. PRENATAL PLUS [Concomitant]
     Dosage: UNK
     Route: 064
  10. LEVOTHYROXINE [Concomitant]
     Dosage: UNK
     Route: 064
  11. AUGMENTIN [Concomitant]
     Dosage: UNK
     Route: 064
  12. GEODON [Concomitant]
     Dosage: UNK
     Route: 064
  13. TRIHEXYPHENIDYL [Concomitant]
     Dosage: UNK
     Route: 064
  14. WELLBUTRIN [Concomitant]
     Dosage: UNK
     Route: 064
  15. XANAX [Concomitant]
     Dosage: UNK
     Route: 064
  16. JOLIVETTE [Concomitant]
     Dosage: UNK
     Route: 064
  17. DICLOFENAC SODIUM EC [Concomitant]
     Dosage: UNK
     Route: 064
  18. FAMOTIDINE [Concomitant]
     Dosage: UNK
     Route: 064
  19. TRAMADOL HCL [Concomitant]
     Dosage: UNK
     Route: 064
  20. METHOCARBAMOL [Concomitant]
     Dosage: UNK
     Route: 064
  21. PROAIR HFA [Concomitant]
     Dosage: UNK
     Route: 064
  22. BENZONATATE [Concomitant]
     Dosage: UNK
     Route: 064
  23. CLARITHROMYCIN [Concomitant]
     Dosage: UNK
     Route: 064
  24. HYDROCODONE [Concomitant]
     Dosage: UNK
     Route: 064
  25. CEFDINIR [Concomitant]
     Dosage: UNK
     Route: 064
  26. NEURONTIN [Concomitant]
     Dosage: UNK
     Route: 064
  27. DEPAKOTE [Concomitant]
     Dosage: UNK
     Route: 064
  28. AZITHROMYCIN [Concomitant]
     Dosage: UNK
     Route: 064

REACTIONS (5)
  - Maternal exposure during pregnancy [Unknown]
  - Cleft lip [Unknown]
  - Cleft palate [Unknown]
  - Ear malformation [Unknown]
  - Congenital anomaly [Unknown]
